FAERS Safety Report 6711929-3 (Version None)
Quarter: 2010Q2

REPORT INFORMATION
  Report Type: 
  Country: None (occurrence: None)
  Receive Date: 20100505
  Receipt Date: 20091229
  Transmission Date: 20101027
  Serious: No
  Sender: FDA-Public Use
  Company Number: US-TYCO HEALTHCARE/MALLINCKRODT-T200902379

PATIENT

DRUGS (10)
  1. METHADONE HCL [Suspect]
     Indication: PAIN
     Dosage: 10 MG, 1 TAB Q6-8
     Route: 048
     Dates: start: 20091117
  2. METHADONE HCL [Suspect]
     Dosage: UNK
  3. MORPHINE [Suspect]
     Dosage: UNK
     Route: 037
     Dates: end: 20091101
  4. LIORESAL [Suspect]
     Indication: MUSCLE SPASTICITY
     Dosage: 700 MCG, QD
     Route: 037
     Dates: end: 20091101
  5. CYMBALTA [Concomitant]
     Indication: DEPRESSION
     Dosage: 30 MG, BID
     Route: 048
  6. BENACORT [Concomitant]
     Indication: HYPERTENSION
     Dosage: 40/25 QAM
     Route: 048
     Dates: start: 20080101
  7. ANDROGEL [Concomitant]
     Indication: HYPOGONADISM
     Dosage: 5 MG, QD
     Route: 061
     Dates: start: 20060101
  8. PROVIGIL [Concomitant]
     Indication: FATIGUE
     Dosage: 200 MG, QAM PRN
     Route: 048
     Dates: start: 20040101
  9. ZEGERID                            /00661201/ [Concomitant]
     Indication: GASTROOESOPHAGEAL REFLUX DISEASE
     Dosage: 40/1100 MG BID
     Route: 048
     Dates: start: 20080101
  10. IBUPROFEN [Concomitant]
     Indication: PAIN
     Dosage: 4, PRN

REACTIONS (3)
  - BLISTER [None]
  - OEDEMA PERIPHERAL [None]
  - PRURITUS GENERALISED [None]
